FAERS Safety Report 24017037 (Version 3)
Quarter: 2024Q3

REPORT INFORMATION
  Report Type: Report from Study
  Country: US (occurrence: US)
  Receive Date: 20240626
  Receipt Date: 20240812
  Transmission Date: 20241017
  Serious: Yes (Other)
  Sender: ABBVIE
  Company Number: US-ABBVIE-5709588

PATIENT
  Age: 64 Year
  Sex: Male
  Weight: 79 kg

DRUGS (4)
  1. SKYRIZI [Suspect]
     Active Substance: RISANKIZUMAB-RZAA
     Indication: Psoriasis
     Route: 058
     Dates: start: 20230828, end: 20230828
  2. SKYRIZI [Suspect]
     Active Substance: RISANKIZUMAB-RZAA
     Route: 058
     Dates: start: 20231028, end: 20231028
  3. SKYRIZI [Suspect]
     Active Substance: RISANKIZUMAB-RZAA
     Dosage: LAST ADMINISTRATION: 2023
     Route: 058
     Dates: start: 20230728
  4. SKYRIZI [Suspect]
     Active Substance: RISANKIZUMAB-RZAA
     Route: 058
     Dates: start: 20230928, end: 20230928

REACTIONS (22)
  - Rotator cuff syndrome [Recovered/Resolved]
  - Road traffic accident [Recovered/Resolved]
  - Psoriasis [Unknown]
  - Limb injury [Recovering/Resolving]
  - Infection [Unknown]
  - Scab [Recovering/Resolving]
  - Joint range of motion decreased [Not Recovered/Not Resolved]
  - Skin swelling [Recovering/Resolving]
  - Erythema [Recovered/Resolved]
  - Arthralgia [Not Recovered/Not Resolved]
  - Joint lock [Unknown]
  - Musculoskeletal disorder [Not Recovered/Not Resolved]
  - Diarrhoea [Unknown]
  - Skin discolouration [Recovered/Resolved]
  - Pain in extremity [Not Recovered/Not Resolved]
  - Joint injury [Unknown]
  - Wound infection [Recovered/Resolved with Sequelae]
  - Skin disorder [Recovering/Resolving]
  - Joint adhesion [Unknown]
  - Condition aggravated [Not Recovered/Not Resolved]
  - Purulence [Recovered/Resolved]
  - Wound [Recovered/Resolved with Sequelae]

NARRATIVE: CASE EVENT DATE: 20230801
